FAERS Safety Report 18352226 (Version 3)
Quarter: 2020Q4

REPORT INFORMATION
  Report Type: Report from Study
  Country: US (occurrence: US)
  Receive Date: 20201006
  Receipt Date: 20201104
  Transmission Date: 20210114
  Serious: Yes (Life-Threatening, Hospitalization, Other)
  Sender: FDA-Public Use
  Company Number: US-GILEAD-2020-0497500

PATIENT
  Age: 74 Year
  Sex: Male

DRUGS (2)
  1. SILDENAFIL. [Concomitant]
     Active Substance: SILDENAFIL
  2. AMBRISENTAN [Suspect]
     Active Substance: AMBRISENTAN
     Indication: PULMONARY HYPERTENSION
     Dosage: 10 MG, QD
     Route: 065
     Dates: start: 20191205

REACTIONS (3)
  - Asthenia [Recovered/Resolved]
  - Pneumonia legionella [Recovered/Resolved]
  - Emphysema [Not Recovered/Not Resolved]

NARRATIVE: CASE EVENT DATE: 20200925
